FAERS Safety Report 23295163 (Version 1)
Quarter: 2023Q4

REPORT INFORMATION
  Report Type: Spontaneous
  Country: TR (occurrence: TR)
  Receive Date: 20231213
  Receipt Date: 20231213
  Transmission Date: 20240110
  Serious: Yes (Other)
  Sender: FDA-Public Use
  Company Number: TR-TOLMAR, INC.-23TR044969

PATIENT
  Age: 85 Year
  Sex: Male
  Weight: 70 kg

DRUGS (7)
  1. ELIGARD [Suspect]
     Active Substance: LEUPROLIDE ACETATE
     Indication: Prostate cancer metastatic
     Dosage: 22.5 MILLIGRAM, Q 3 MONTH
     Route: 058
  2. ELIGARD [Suspect]
     Active Substance: LEUPROLIDE ACETATE
     Indication: Prostate cancer metastatic
     Dosage: UNK
  3. METOPROLOL [Concomitant]
     Active Substance: METOPROLOL
     Indication: Product used for unknown indication
     Dosage: 25 MILLIGRAM
  4. ENALAPRIL;LERCANIDIPINE [Concomitant]
     Indication: Product used for unknown indication
  5. BICALUTAMIDE [Concomitant]
     Active Substance: BICALUTAMIDE
     Indication: Product used for unknown indication
     Dosage: 50 MILLIGRAM
  6. ENZALUTAMIDE [Concomitant]
     Active Substance: ENZALUTAMIDE
     Indication: Prostate cancer metastatic
     Dosage: 160 MILLIGRAM
     Dates: start: 20220220
  7. ZOLEDRONIC ACID [Concomitant]
     Active Substance: ZOLEDRONIC ACID
     Indication: Metastases to bone
     Dosage: 4 MILLIGRAM, EVERY 28 DAYS
     Dates: start: 20221220

REACTIONS (4)
  - Metastases to bone [Unknown]
  - Prostatic specific antigen increased [Unknown]
  - Malaise [Unknown]
  - Fatigue [Unknown]
